FAERS Safety Report 12196727 (Version 3)
Quarter: 2017Q1

REPORT INFORMATION
  Report Type: Spontaneous
  Country: US (occurrence: US)
  Receive Date: 20160321
  Receipt Date: 20170302
  Transmission Date: 20170428
  Serious: No
  Sender: FDA-Public Use
  Company Number: US-ASTRAZENECA-2016SE27537

PATIENT
  Age: 749 Month
  Sex: Male
  Weight: 86.2 kg

DRUGS (3)
  1. SYMBICORT [Suspect]
     Active Substance: BUDESONIDE\FORMOTEROL FUMARATE DIHYDRATE
     Indication: ASTHMA
     Dosage: 160/4.5MCG, 2 PUFFS TWICE A DAY
     Route: 055
     Dates: start: 201502
  2. PROAIR HFA [Concomitant]
     Active Substance: ALBUTEROL SULFATE
     Indication: ASTHMA
     Dosage: AS REQUIRED NO MORE THAN 1 PUFF EVERY 4 HOURS
     Route: 055
     Dates: start: 201502
  3. TUDORZA PRESSAIR [Suspect]
     Active Substance: ACLIDINIUM BROMIDE
     Indication: ASTHMA
     Dosage: ONE PUFF TWICE A DAY
     Route: 055
     Dates: start: 201502

REACTIONS (14)
  - Drug hypersensitivity [Unknown]
  - Vision blurred [Unknown]
  - Visual impairment [Unknown]
  - Weight increased [Unknown]
  - Dyspnoea [Unknown]
  - Nasopharyngitis [Unknown]
  - Circumstance or information capable of leading to medication error [Unknown]
  - Drug dose omission [Unknown]
  - Off label use [Unknown]
  - Cataract [Unknown]
  - Product use issue [Unknown]
  - Device failure [Unknown]
  - Withdrawal syndrome [Unknown]
  - Panic attack [Unknown]

NARRATIVE: CASE EVENT DATE: 201602
